FAERS Safety Report 9929715 (Version 1)
Quarter: 2014Q1

REPORT INFORMATION
  Report Type: Report from Study
  Country: US (occurrence: US)
  Receive Date: 20140227
  Receipt Date: 20140227
  Transmission Date: 20141002
  Serious: Yes (Hospitalization)
  Sender: FDA-Public Use
  Company Number: PHEH2014US003548

PATIENT
  Sex: Female

DRUGS (1)
  1. GILENYA [Suspect]

REACTIONS (7)
  - Tremor [Unknown]
  - Choking [Unknown]
  - Rectal haemorrhage [Unknown]
  - Uterine haemorrhage [Unknown]
  - Ovarian cyst [Unknown]
  - Hypoaesthesia [Unknown]
  - Cough [Unknown]
